FAERS Safety Report 6542013-X (Version None)
Quarter: 2010Q1

REPORT INFORMATION
  Report Type: 
  Country: None (occurrence: None)
  Receive Date: 20100119
  Receipt Date: 20100108
  Transmission Date: 20100710
  Serious: Yes (Hospitalization)
  Sender: FDA-Public Use
  Company Number: US-ROCHE-679500

PATIENT
  Sex: Male

DRUGS (3)
  1. BEVACIZUMAB [Suspect]
     Indication: SARCOMA
     Dosage: FORM: INFUSION.
     Route: 065
     Dates: start: 20091201, end: 20091222
  2. GEMCITABINE [Suspect]
     Indication: SARCOMA
     Dosage: FORM: INFUSION.
     Route: 065
     Dates: start: 20091201, end: 20091222
  3. DOCETAXEL [Suspect]
     Indication: SARCOMA
     Dosage: FORM: INFUSION.
     Route: 065
     Dates: start: 20091201, end: 20091222

REACTIONS (1)
  - NEPHROLITHIASIS [None]
